FAERS Safety Report 4898615-X (Version None)
Quarter: 2006Q1

REPORT INFORMATION
  Report Type: 
  Country: None (occurrence: None)
  Receive Date: 20060202
  Receipt Date: 20060123
  Transmission Date: 20060701
  Serious: Yes (Death)
  Sender: FDA-Public Use
  Company Number: US-JNJFOC-20051102271

PATIENT
  Sex: Male
  Weight: 77.11 kg

DRUGS (13)
  1. DURAGESIC-100 [Suspect]
     Route: 062
  2. DURAGESIC-100 [Suspect]
     Route: 062
  3. NEURONTIN [Concomitant]
     Route: 048
  4. ELAVIL [Concomitant]
     Dosage: OCCASSIONALLY
     Route: 048
  5. ALBUTEROL SULFATE AUTOHALER [Concomitant]
     Dosage: 2 PUFFS, 1 IN 6 HOURS, AS NEEDED
     Route: 048
  6. AMITRIPTYLINE HCL [Concomitant]
     Route: 048
  7. TEGRETOL [Concomitant]
     Route: 048
  8. IPRATROPIUM BROMIDE [Concomitant]
     Dosage: 2 PUFFS, 1 IN 6 HOURS
     Route: 048
  9. CLONAZEPAM [Concomitant]
     Route: 048
  10. CLONAZEPAM [Concomitant]
     Indication: PROPHYLAXIS AGAINST ALCOHOLIC WITHDRAWAL SYNDROME
     Route: 048
  11. NITROGLYCERIN [Concomitant]
     Route: 060
  12. PERCOCET [Concomitant]
     Route: 048
  13. PERCOCET [Concomitant]
     Dosage: 5 MG OXYCODONE/325 MG ACETAMINOPHEN, 1 IN 6 HOURS, AS NEEDED
     Route: 048

REACTIONS (2)
  - CARDIO-RESPIRATORY ARREST [None]
  - COMA [None]
